FAERS Safety Report 25735419 (Version 1)
Quarter: 2025Q3

REPORT INFORMATION
  Report Type: Spontaneous
  Country: US (occurrence: None)
  Receive Date: 20250827
  Receipt Date: 20250827
  Transmission Date: 20251021
  Serious: No
  Sender: FDA-CTU
  Company Number: None

PATIENT
  Age: 83 Year
  Sex: Female
  Weight: 72 kg

DRUGS (7)
  1. IMATINIB. [Suspect]
     Active Substance: IMATINIB MESYLATE
     Indication: Philadelphia positive chronic myeloid leukaemia
     Dosage: FREQUENCY : DAILY;?
     Route: 048
     Dates: start: 20231218
  2. LEVOTHROXINE 88MCG TAB [Concomitant]
     Dates: start: 20250827
  3. LISINOPRIL [Concomitant]
     Active Substance: LISINOPRIL
     Dates: start: 20250827
  4. SIMVASTATIN [Concomitant]
     Active Substance: SIMVASTATIN
     Dates: start: 20250827
  5. DONEPEZIL HYDROCHLORIDE [Concomitant]
     Active Substance: DONEPEZIL HYDROCHLORIDE
     Dates: start: 20250827
  6. DOXYCYCLINE HYCLATE [Concomitant]
     Active Substance: DOXYCYCLINE HYCLATE
     Dates: start: 20240617
  7. HCTZ 12.5MG TAB [Concomitant]
     Dates: start: 20230127

REACTIONS (1)
  - Muscle spasms [None]

NARRATIVE: CASE EVENT DATE: 20250827
